FAERS Safety Report 17350006 (Version 1)
Quarter: 2020Q1

REPORT INFORMATION
  Report Type: Spontaneous
  Country: US (occurrence: US)
  Receive Date: 20200129
  Receipt Date: 20200129
  Transmission Date: 20200409
  Serious: Yes (Other)
  Sender: FDA-Public Use
  Company Number: None

PATIENT
  Age: 62 Year
  Sex: Female
  Weight: 68.04 kg

DRUGS (2)
  1. GADOLINIUM-BASED CONTRAST AGENT [Suspect]
     Active Substance: GADOLINIUM
  2. CONTRAST DYE [Suspect]
     Active Substance: UNSPECIFIED INGREDIENT

REACTIONS (18)
  - Musculoskeletal chest pain [None]
  - Condition aggravated [None]
  - Eye pain [None]
  - Skin hypertrophy [None]
  - Burning sensation [None]
  - Tinnitus [None]
  - Antipsychotic drug level increased [None]
  - Manganese increased [None]
  - Eye irritation [None]
  - Dyspnoea [None]
  - Rash macular [None]
  - Pruritus [None]
  - Head discomfort [None]
  - Near death experience [None]
  - Chest pain [None]
  - Skin discolouration [None]
  - Flank pain [None]
  - Headache [None]

NARRATIVE: CASE EVENT DATE: 20070701
